FAERS Safety Report 9532208 (Version 1)
Quarter: 2013Q3

REPORT INFORMATION
  Report Type: Spontaneous
  Country: IT (occurrence: IT)
  Receive Date: 20130918
  Receipt Date: 20130918
  Transmission Date: 20140515
  Serious: Yes (Other)
  Sender: FDA-Public Use
  Company Number: IT-ELI_LILLY_AND_COMPANY-IT201309004424

PATIENT
  Age: 84 Year
  Sex: Male

DRUGS (7)
  1. FORSTEO [Suspect]
     Indication: RHEUMATOID ARTHRITIS
     Dosage: UNK, QD
     Route: 058
     Dates: start: 20130502, end: 20130513
  2. LANSOPRAZOLE [Concomitant]
     Indication: PROPHYLAXIS AGAINST GASTROINTESTINAL ULCER
  3. METHOTREXATE SODIUM [Concomitant]
     Indication: RHEUMATOID ARTHRITIS
  4. CALCIUM LEVOFOLINATE [Concomitant]
     Indication: FOLATE DEFICIENCY
  5. DEFLAN [Concomitant]
     Indication: RHEUMATOID ARTHRITIS
  6. CLASTEON [Concomitant]
     Indication: OSTEOPOROSIS PROPHYLAXIS
  7. FOSAVANCE [Concomitant]
     Indication: OSTEOPOROSIS PROPHYLAXIS

REACTIONS (3)
  - Hallucination [Recovered/Resolved]
  - Petit mal epilepsy [Recovered/Resolved]
  - Off label use [Recovered/Resolved]
